APPROVED DRUG PRODUCT: DOXYCYCLINE HYCLATE
Active Ingredient: DOXYCYCLINE HYCLATE
Strength: EQ 150MG BASE
Dosage Form/Route: TABLET, DELAYED RELEASE;ORAL
Application: A208741 | Product #007
Applicant: LUPIN INC
Approved: Aug 11, 2023 | RLD: No | RS: No | Type: DISCN